FAERS Safety Report 5480060-X (Version None)
Quarter: 2007Q4

REPORT INFORMATION
  Report Type: 
  Country: None (occurrence: None)
  Receive Date: 20071008
  Receipt Date: 20070926
  Transmission Date: 20080405
  Serious: Yes (Other)
  Sender: FDA-Public Use
  Company Number: US-PFIZER INC-2007080563

PATIENT
  Age: 23 Year
  Sex: Female

DRUGS (4)
  1. GEODON [Suspect]
     Indication: BIPOLAR DISORDER
     Route: 048
     Dates: start: 20070308, end: 20070809
  2. ADDERALL 20 [Concomitant]
     Indication: ATTENTION DEFICIT/HYPERACTIVITY DISORDER
     Route: 048
  3. KLONOPIN [Concomitant]
     Indication: GENERALISED ANXIETY DISORDER
     Route: 048
  4. ADDERALL 10 [Concomitant]
     Indication: ATTENTION DEFICIT/HYPERACTIVITY DISORDER
     Route: 048

REACTIONS (4)
  - CONCUSSION [None]
  - HYPERSOMNIA [None]
  - NARCOLEPSY [None]
  - ROAD TRAFFIC ACCIDENT [None]
